FAERS Safety Report 8952574 (Version 1)
Quarter: 2012Q4

REPORT INFORMATION
  Report Type: Report from Study
  Country: CH (occurrence: US)
  Receive Date: 20121205
  Receipt Date: 20121205
  Transmission Date: 20130627
  Serious: Yes (Hospitalization)
  Sender: FDA-Public Use
  Company Number: US-BRISTOL-MYERS SQUIBB COMPANY-17158288

PATIENT
  Age: 54 Year
  Sex: Male
  Weight: 82 kg

DRUGS (5)
  1. CETUXIMAB [Suspect]
     Indication: HEAD AND NECK CANCER
     Dosage: Last dose: 25Jan10
     Route: 065
     Dates: start: 20100104
  2. CISPLATIN [Suspect]
     Indication: HEAD AND NECK CANCER
     Dosage: Last dose: 25Jan10
     Route: 065
     Dates: start: 20100104
  3. BEVACIZUMAB [Suspect]
     Indication: HEAD AND NECK CANCER
     Dosage: Last dose: 25Jan10
     Route: 065
     Dates: start: 20100111
  4. FENTANYL PATCH [Concomitant]
  5. LANTUS [Concomitant]
     Dosage: 1 df= 20 unit nos

REACTIONS (5)
  - Upper gastrointestinal haemorrhage [Unknown]
  - Cellulitis [Unknown]
  - Laryngeal pain [Unknown]
  - Pyrexia [Unknown]
  - Thrombosis [Recovered/Resolved]
